FAERS Safety Report 23465767 (Version 2)
Quarter: 2024Q2

REPORT INFORMATION
  Report Type: Spontaneous
  Country: SK (occurrence: SK)
  Receive Date: 20240201
  Receipt Date: 20240617
  Transmission Date: 20240716
  Serious: Yes (Other)
  Sender: FDA-Public Use
  Company Number: SK-JNJFOC-20240168392

PATIENT
  Age: 33 Year
  Sex: Male

DRUGS (10)
  1. SPRAVATO [Suspect]
     Active Substance: ESKETAMINE
     Indication: Depression
  2. SPRAVATO [Suspect]
     Active Substance: ESKETAMINE
  3. PAROXETINE [Concomitant]
     Active Substance: PAROXETINE
     Route: 065
  4. PAROXETINE [Concomitant]
     Active Substance: PAROXETINE
     Route: 065
  5. PAROXETINE [Concomitant]
     Active Substance: PAROXETINE
     Dosage: 0-0-1/2
     Route: 048
  6. MOCLOBEMIDE [Concomitant]
     Active Substance: MOCLOBEMIDE
     Route: 065
  7. MOCLOBEMIDE [Concomitant]
     Active Substance: MOCLOBEMIDE
     Route: 065
  8. MOCLOBEMIDE [Concomitant]
     Active Substance: MOCLOBEMIDE
     Dosage: 1-1-0
     Route: 048
  9. QUETIAPINE [Concomitant]
     Active Substance: QUETIAPINE
     Dosage: 0-0-0-1
     Route: 048
  10. ZOLPIDEM [Concomitant]
     Active Substance: ZOLPIDEM TARTRATE
     Dosage: 1 TBL PER NIGHT MON
     Route: 065

REACTIONS (9)
  - Hallucination, visual [Unknown]
  - Psychiatric symptom [Unknown]
  - Hypertension [Unknown]
  - Dissociation [Unknown]
  - Euphoric mood [Unknown]
  - Sedation [Unknown]
  - Vertigo [Unknown]
  - Nausea [Unknown]
  - Diplopia [Unknown]
